FAERS Safety Report 5056417-8 (Version None)
Quarter: 2006Q3

REPORT INFORMATION
  Report Type: 
  Country: None (occurrence: None)
  Receive Date: 20060720
  Receipt Date: 20060717
  Transmission Date: 20061208
  Serious: Yes (Other)
  Sender: FDA-Public Use
  Company Number: US-GLAXOSMITHKLINE-A0612418A

PATIENT
  Age: 85 Year
  Sex: Male

DRUGS (7)
  1. DEBROX DROPS [Suspect]
  2. NEURONTIN [Concomitant]
  3. PROSCAR [Concomitant]
  4. LIPITOR [Concomitant]
  5. SYNTHROID [Concomitant]
  6. IMDUR [Concomitant]
  7. LEVOXYL [Concomitant]

REACTIONS (2)
  - CERUMEN IMPACTION [None]
  - EAR HAEMORRHAGE [None]
